FAERS Safety Report 8495075-7 (Version None)
Quarter: 2012Q3

REPORT INFORMATION
  Report Type: 
  Country: None (occurrence: None)
  Receive Date: 20120709
  Receipt Date: 20120629
  Transmission Date: 20120928
  Serious: Yes (Hospitalization, Other)
  Sender: FDA-Public Use
  Company Number: US-JNJFOC-20120700668

PATIENT
  Sex: Female
  Weight: 120.2 kg

DRUGS (6)
  1. DURAGESIC-100 [Suspect]
     Indication: PAIN
     Route: 062
     Dates: start: 20100101, end: 20120201
  2. OXYCODONE HCL [Suspect]
     Indication: PRODUCT USED FOR UNKNOWN INDICATION
     Route: 065
  3. DURAGESIC-100 [Suspect]
     Route: 062
     Dates: start: 20120101
  4. FENTANYL-100 [Suspect]
     Route: 062
     Dates: start: 20120101, end: 20120201
  5. OXYCONTIN [Suspect]
     Indication: PAIN
     Route: 065
     Dates: start: 20120201, end: 20120101
  6. FENTANYL-100 [Suspect]
     Indication: PAIN
     Route: 062
     Dates: start: 20100101

REACTIONS (7)
  - INAPPROPRIATE SCHEDULE OF DRUG ADMINISTRATION [None]
  - BREAKTHROUGH PAIN [None]
  - THYROID DISORDER [None]
  - PRODUCT QUALITY ISSUE [None]
  - ARTHRALGIA [None]
  - BURSITIS [None]
  - WRONG TECHNIQUE IN DRUG USAGE PROCESS [None]
